FAERS Safety Report 9999596 (Version 1)
Quarter: 2014Q1

REPORT INFORMATION
  Report Type: Spontaneous
  Country: BR (occurrence: BR)
  Receive Date: 20140312
  Receipt Date: 20140312
  Transmission Date: 20141002
  Serious: Yes (Other)
  Sender: FDA-Public Use
  Company Number: PHHY2014BR025824

PATIENT
  Sex: Female

DRUGS (3)
  1. TASIGNA [Suspect]
     Indication: CHRONIC MYELOID LEUKAEMIA
     Dosage: 2 DF, DAILY
     Dates: start: 20130217, end: 20130710
  2. TASIGNA [Suspect]
     Dosage: 2 DF, DAILY
     Dates: start: 201308, end: 20130918
  3. TASIGNA [Suspect]
     Dosage: 2 DF, DAILY
     Dates: start: 201310

REACTIONS (5)
  - Dermatitis infected [Unknown]
  - Dermatitis bullous [Recovering/Resolving]
  - Neutropenia [Unknown]
  - Local swelling [Unknown]
  - Pain in extremity [Unknown]
